APPROVED DRUG PRODUCT: UROPLUS SS
Active Ingredient: SULFAMETHOXAZOLE; TRIMETHOPRIM
Strength: 400MG;80MG
Dosage Form/Route: TABLET;ORAL
Application: A071815 | Product #001
Applicant: SHIONOGI USA INC
Approved: Sep 28, 1987 | RLD: No | RS: No | Type: DISCN